FAERS Safety Report 11588467 (Version 1)
Quarter: 2015Q4

REPORT INFORMATION
  Report Type: Spontaneous
  Country: US (occurrence: None)
  Receive Date: 20151001
  Receipt Date: 20151001
  Transmission Date: 20160304
  Serious: Yes (Disabling)
  Sender: FDA-Public Use
  Company Number: None

PATIENT
  Age: 50 Year
  Sex: Male
  Weight: 113.4 kg

DRUGS (10)
  1. MOTRIN [Concomitant]
     Active Substance: IBUPROFEN
  2. PERI-COLACE [Concomitant]
     Active Substance: CASANTHRANOL\DOCUSATE SODIUM
  3. CLONIDINE 0.1 MG [Suspect]
     Active Substance: CLONIDINE
     Indication: DRUG WITHDRAWAL SYNDROME
     Route: 048
     Dates: start: 20150903, end: 20150904
  4. VALIUM [Concomitant]
     Active Substance: DIAZEPAM
  5. WELLBUTRIN XL [Concomitant]
     Active Substance: BUPROPION HYDROCHLORIDE
  6. KLONOPIN [Concomitant]
     Active Substance: CLONAZEPAM
  7. MORPHINE SULFATE IR [Concomitant]
  8. PULMICORT W/ SALINE NASAL RINSE [Concomitant]
  9. VITAMIN D3 [Concomitant]
     Active Substance: CHOLECALCIFEROL
  10. MORPHINE SULFATE ER [Concomitant]
     Active Substance: MORPHINE SULFATE

REACTIONS (23)
  - Anxiety [None]
  - Syncope [None]
  - Dyspnoea [None]
  - Ultrasound scan abnormal [None]
  - Tremor [None]
  - Personality change [None]
  - Nausea [None]
  - Dizziness [None]
  - Agitation [None]
  - Irregular breathing [None]
  - Aggression [None]
  - Chest discomfort [None]
  - Fatigue [None]
  - Ventricular extrasystoles [None]
  - Fall [None]
  - Blood pressure increased [None]
  - Activities of daily living impaired [None]
  - Feeling drunk [None]
  - Cardiac stress test abnormal [None]
  - Malaise [None]
  - Anger [None]
  - Asthenia [None]
  - Heart rate increased [None]

NARRATIVE: CASE EVENT DATE: 20150904
